FAERS Safety Report 8817365 (Version 3)
Quarter: 2012Q4

REPORT INFORMATION
  Report Type: 
  Country: US (occurrence: US)
  Receive Date: 20121001
  Receipt Date: 20121204
  Transmission Date: 20130627
  Serious: Yes (Hospitalization)
  Sender: FDA-Public Use
  Company Number: US-SANOFI-AVENTIS-2012SA069065

PATIENT
  Age: 56 Year
  Sex: Male
  Weight: 83.1 kg

DRUGS (6)
  1. LANTUS [Suspect]
     Indication: TYPE II DIABETES MELLITUS
     Dosage: Dose:60 unit(s)
     Route: 058
  2. PLAVIX [Concomitant]
     Indication: HEART DISORDER
     Dosage: took one daily
     Dates: start: 20111023
  3. CLONIDINE [Concomitant]
     Indication: BLOOD PRESSURE HIGH
  4. LASIX [Concomitant]
     Indication: FLUID RETENTION
  5. AMLODIPINE BESILATE [Concomitant]
     Indication: BLOOD PRESSURE HIGH
  6. DIOVANE [Concomitant]
     Indication: BLOOD PRESSURE HIGH

REACTIONS (1)
  - Foot amputation [Unknown]
